FAERS Safety Report 9312302 (Version 1)
Quarter: 2013Q2

REPORT INFORMATION
  Report Type: Spontaneous
  Country: ES (occurrence: ES)
  Receive Date: 20130528
  Receipt Date: 20130528
  Transmission Date: 20140414
  Serious: Yes (Other)
  Sender: FDA-Public Use
  Company Number: ES-JNJFOC-20130510464

PATIENT
  Sex: Male

DRUGS (2)
  1. ZYTIGA [Suspect]
     Indication: PROSTATE CANCER
     Dosage: 250 MG X 4 PER DAY
     Route: 048
  2. PREDNISONE [Concomitant]
     Indication: PROSTATE CANCER
     Route: 065

REACTIONS (7)
  - Hyperglycaemia [Unknown]
  - Fall [Unknown]
  - Fatigue [Unknown]
  - Gait disturbance [Unknown]
  - Treatment noncompliance [Unknown]
  - Dizziness [Unknown]
  - Nausea [Unknown]
